FAERS Safety Report 17566007 (Version 1)
Quarter: 2020Q1

REPORT INFORMATION
  Report Type: Spontaneous
  Country: US (occurrence: US)
  Receive Date: 20200320
  Receipt Date: 20200320
  Transmission Date: 20200409
  Serious: Yes (Other)
  Sender: FDA-Public Use
  Company Number: None

PATIENT
  Age: 15 Year
  Sex: Female
  Weight: 54.45 kg

DRUGS (9)
  1. EXCEDRINE MIGRAINE OTC [Concomitant]
  2. ESCITALOPRAM 5 MG TAB [Concomitant]
     Dates: start: 20200206, end: 20200225
  3. ALBUTEROL NEBULIZER SOLUTION 0.083% [Concomitant]
     Dates: start: 20111028, end: 20200320
  4. XYZAL OTC [Concomitant]
  5. HYDROROXYZINE 25 MG TAB [Concomitant]
     Dates: start: 20190516, end: 20200320
  6. FLUOXETINE 20 MG CAP [Concomitant]
     Dates: start: 20190430, end: 20200205
  7. MONTELUKAST [Suspect]
     Active Substance: MONTELUKAST SODIUM
     Indication: ASTHMA
     Route: 048
     Dates: start: 20150407, end: 20200224
  8. MONTELUKAST [Suspect]
     Active Substance: MONTELUKAST SODIUM
     Indication: RHINITIS
     Route: 048
     Dates: start: 20150407, end: 20200224
  9. PROAIR HFA [Concomitant]
     Active Substance: ALBUTEROL SULFATE
     Dates: start: 20120312, end: 20200320

REACTIONS (2)
  - Overdose [None]
  - Suicide attempt [None]

NARRATIVE: CASE EVENT DATE: 20200224
